FAERS Safety Report 9745663 (Version 1)
Quarter: 2013Q4

REPORT INFORMATION
  Report Type: Spontaneous
  Country: US (occurrence: US)
  Receive Date: 20131211
  Receipt Date: 20131211
  Transmission Date: 20140711
  Serious: No
  Sender: FDA-Public Use
  Company Number: US-009507513-1312IND000913

PATIENT
  Age: 49 Year
  Sex: Female

DRUGS (1)
  1. TIMOPTIC [Suspect]
     Indication: GLAUCOMA
     Dosage: DAILY DOSE: 1 DROP IN ONE EYE
     Route: 047
     Dates: start: 1986, end: 20130312

REACTIONS (2)
  - Eye burns [Unknown]
  - Blepharospasm [Unknown]
